FAERS Safety Report 9575738 (Version 1)
Quarter: 2013Q4

REPORT INFORMATION
  Report Type: Spontaneous
  Country: US (occurrence: US)
  Receive Date: 20131001
  Receipt Date: 20131001
  Transmission Date: 20140711
  Serious: No
  Sender: FDA-Public Use
  Company Number: US-AMGEN-USASP2012041421

PATIENT
  Age: 72 Year
  Sex: Male
  Weight: 92.06 kg

DRUGS (3)
  1. PROCRIT [Suspect]
     Indication: MYELODYSPLASTIC SYNDROME
     Dosage: UNK UNK, QWK
     Dates: start: 20120702
  2. ZOCOR [Concomitant]
     Indication: BLOOD CHOLESTEROL
     Dosage: 40 MG, QD
     Route: 048
  3. DIGOXIN [Concomitant]
     Indication: ATRIAL FIBRILLATION
     Dosage: 0.25 MG, QD
     Route: 048

REACTIONS (1)
  - Chromaturia [Not Recovered/Not Resolved]
